FAERS Safety Report 18852732 (Version 1)
Quarter: 2021Q1

REPORT INFORMATION
  Report Type: Report from Study
  Country: IE (occurrence: IE)
  Receive Date: 20210205
  Receipt Date: 20210205
  Transmission Date: 20210420
  Serious: Yes (Other)
  Sender: FDA-Public Use
  Company Number: NVSC2020IE343454

PATIENT
  Age: 1 Year
  Sex: Female
  Weight: 11.5 kg

DRUGS (4)
  1. TRAMETINIB [Suspect]
     Active Substance: TRAMETINIB
     Indication: CONGENITAL MELANOCYTIC NAEVUS
     Dosage: 0.032 MG/KG
     Route: 048
     Dates: start: 201904, end: 20200308
  2. DABRAFENIB [Suspect]
     Active Substance: DABRAFENIB
     Indication: CONGENITAL MELANOCYTIC NAEVUS
     Dosage: UNK
     Route: 065
  3. TRAMETINIB [Suspect]
     Active Substance: TRAMETINIB
     Dosage: 0.024 MG/KG, QD (POWDER FOR RECONSTITUTION)
     Route: 048
  4. KEPPRA [Concomitant]
     Active Substance: LEVETIRACETAM
     Indication: PRODUCT USED FOR UNKNOWN INDICATION
     Dosage: UNK
     Route: 065

REACTIONS (3)
  - Skin abrasion [Recovering/Resolving]
  - Paronychia [Recovered/Resolved]
  - Perineal disorder [Recovering/Resolving]

NARRATIVE: CASE EVENT DATE: 202001
